FAERS Safety Report 6410227-5 (Version None)
Quarter: 2009Q4

REPORT INFORMATION
  Report Type: 
  Country: None (occurrence: None)
  Receive Date: 20091022
  Receipt Date: 20091019
  Transmission Date: 20100525
  Serious: Yes (Life-Threatening, Other)
  Sender: FDA-Public Use
  Company Number: PHHY2009BR35031

PATIENT
  Age: 53 Year
  Sex: Female

DRUGS (5)
  1. RASILEZ [Suspect]
     Indication: HYPERTENSION
     Dosage: 1 TABLET (300 MG) PER DAY
     Route: 048
     Dates: start: 20090615
  2. ENALAPRIL MALEATE [Concomitant]
     Indication: HYPERTENSION
     Dosage: 1 TABLET (10 MG) TWICE A DAY
     Route: 048
     Dates: start: 20090615
  3. SIMVASTATIN [Concomitant]
     Indication: HYPERTENSION
     Dosage: 1 TABLET AT NIGHT
     Route: 048
     Dates: start: 20090615
  4. ATENOLOL [Concomitant]
     Indication: HYPERTENSION
     Dosage: 1 TABLET (25 MG) AT NIGHT
     Route: 048
     Dates: start: 20090615
  5. CLORANA [Concomitant]
     Indication: HYPERTENSION
     Dosage: HALF TABLET (12.5 MG) A DAY
     Route: 048

REACTIONS (12)
  - BLOOD PRESSURE INCREASED [None]
  - CHEST DISCOMFORT [None]
  - DEFAECATION URGENCY [None]
  - DYSPNOEA [None]
  - ERUCTATION [None]
  - ERYTHEMA [None]
  - FEELING ABNORMAL [None]
  - HOT FLUSH [None]
  - HYPOAESTHESIA ORAL [None]
  - NAUSEA [None]
  - TACHYCARDIA [None]
  - TREMOR [None]
